FAERS Safety Report 7320961-0 (Version None)
Quarter: 2011Q1

REPORT INFORMATION
  Report Type: 
  Country: None (occurrence: None)
  Receive Date: 20110126
  Receipt Date: 20101111
  Transmission Date: 20110831
  Serious: Yes (Death, Hospitalization)
  Sender: FDA-Public Use
  Company Number: A-NJ2010-41715

PATIENT
  Sex: Female

DRUGS (1)
  1. EPOPROSTENOL SODIUM [Suspect]
     Indication: PULMONARY ARTERIAL HYPERTENSION
     Dosage: 62.5 NG/KG, PER MIN, IV DRIP
     Route: 041
     Dates: start: 20100930

REACTIONS (2)
  - HAEMORRHAGE INTRACRANIAL [None]
  - PULMONARY EMBOLISM [None]
